FAERS Safety Report 15994900 (Version 2)
Quarter: 2019Q1

REPORT INFORMATION
  Report Type: Report from Study
  Country: LV (occurrence: LV)
  Receive Date: 20190222
  Receipt Date: 20190311
  Transmission Date: 20190418
  Serious: Yes (Hospitalization)
  Sender: FDA-Public Use
  Company Number: LV-ROCHE-2266765

PATIENT
  Age: 29 Year
  Sex: Male
  Weight: 78 kg

DRUGS (10)
  1. OCRELIZUMAB. [Suspect]
     Active Substance: OCRELIZUMAB
     Indication: RELAPSING-REMITTING MULTIPLE SCLEROSIS
     Dosage: (BASELINE (WEEK 1), 28/MAR/2012 (WEEK 2), ADMINISTERED AS DUAL INFUSION ON DAY 1 AND DAY 15 OF CYCLE
     Route: 042
     Dates: start: 20120314
  2. PLACEBO [Suspect]
     Active Substance: UNSPECIFIED INGREDIENT
     Indication: RELAPSING-REMITTING MULTIPLE SCLEROSIS
     Dosage: 15/JAN/2014, 07/FEB/2014
     Route: 058
     Dates: start: 20120314
  3. PARACETAMOL ACTAVIS [Concomitant]
     Active Substance: ACETAMINOPHEN
     Dosage: 14/MAR/2012 (BASELINE (WEEK 1), 28/MAR/2012 (WEEK 2), 29/AUG/2012 (WEEK 24), 13/FEB/2013 (WEEK 48),
     Route: 065
  4. CLEMASTINE [Concomitant]
     Active Substance: CLEMASTINE
     Dosage: 14/MAR/2012 (BASELINE (WEEK 1), 28/MAR/2012 (WEEK 2), 29/AUG/2012 (WEEK 24), 13/FEB/2013 (WEEK 48),
     Route: 065
  5. OCRELIZUMAB. [Suspect]
     Active Substance: OCRELIZUMAB
     Dosage: 29/AUG/2012 (WEEK 24)
     Route: 042
  6. OCRELIZUMAB. [Suspect]
     Active Substance: OCRELIZUMAB
     Dosage: 23/JUL/2014 (OLE-WEEK 24), 12/JAN/2015 (OLE-WEEK 48), 02/JUL/2015 (OLE-WEEK 72), 16/DEC/2015 (OLE-WE
     Route: 042
  7. METHYLPREDNISOLONE. [Concomitant]
     Active Substance: METHYLPREDNISOLONE
     Dosage: 14/MAR/2012 (BASELINE (WEEK 1), 28/MAR/2012 (WEEK 2), 29/AUG/2012 (WEEK 24), 13/FEB/2013 (WEEK 48),
     Route: 065
  8. OCRELIZUMAB. [Suspect]
     Active Substance: OCRELIZUMAB
     Dosage: 13/FEB/2013 (WEEK 48), 31/JUL/2013 (WEEK 72)
     Route: 042
  9. OCRELIZUMAB. [Suspect]
     Active Substance: OCRELIZUMAB
     Indication: RELAPSING-REMITTING MULTIPLE SCLEROSIS
     Dosage: 10/FEB/2014 (OLE-WEEK 0), 24/FEB/2014 (OLE-WEEK 2)?ADMINISTERED AS 600 MG INTRAVENOUS AS 300 MG INFU
     Route: 042
  10. CEFADROXILUM [Concomitant]
     Indication: BRONCHITIS
     Route: 065
     Dates: start: 20121117

REACTIONS (1)
  - Bronchitis [Recovered/Resolved]

NARRATIVE: CASE EVENT DATE: 20190103
